FAERS Safety Report 10776192 (Version 1)
Quarter: 2015Q1

REPORT INFORMATION
  Report Type: Other
  Country: US (occurrence: US)
  Receive Date: 20150209
  Receipt Date: 20150209
  Transmission Date: 20150721
  Serious: Yes (Death)
  Sender: FDA-Public Use
  Company Number: US-FRI-1000074328

PATIENT
  Age: 50 Year
  Sex: Female

DRUGS (7)
  1. MORPHINE [Suspect]
     Active Substance: MORPHINE
  2. CITALOPRAM [Suspect]
     Active Substance: CITALOPRAM HYDROBROMIDE
  3. DIAZEPAM. [Suspect]
     Active Substance: DIAZEPAM
  4. ACETAMINOPHEN. [Suspect]
     Active Substance: ACETAMINOPHEN
  5. DOXYLAMINE [Suspect]
     Active Substance: DOXYLAMINE
  6. METHADONE [Suspect]
     Active Substance: METHADONE HYDROCHLORIDE
  7. DEXTROMETHORPHAN [Suspect]
     Active Substance: DEXTROMETHORPHAN

REACTIONS (3)
  - Cardiac arrest [None]
  - Drug abuse [Fatal]
  - Respiratory arrest [None]
